FAERS Safety Report 7066374-0 (Version None)
Quarter: 2010Q4

REPORT INFORMATION
  Report Type: 
  Country: None (occurrence: None)
  Receive Date: 20101027
  Receipt Date: 20100111
  Transmission Date: 20110411
  Serious: Yes (Other)
  Sender: FDA-Public Use
  Company Number: US-WYE-H11214109

PATIENT
  Sex: Female

DRUGS (8)
  1. PREMPRO [Suspect]
     Indication: HORMONE REPLACEMENT THERAPY
  2. PROVERA [Suspect]
  3. TESTOSTERONE [Suspect]
  4. MEDROXYPROGESTERONE ACETATE [Suspect]
  5. VAGIFEM [Suspect]
  6. CLIMARA [Suspect]
  7. PREMARIN [Suspect]
  8. ESTRATEST H.S. [Suspect]

REACTIONS (1)
  - BREAST CANCER [None]
